FAERS Safety Report 10336676 (Version 3)
Quarter: 2015Q3

REPORT INFORMATION
  Report Type: Spontaneous
  Country: US (occurrence: US)
  Receive Date: 20140723
  Receipt Date: 20150721
  Transmission Date: 20151125
  Serious: No
  Sender: FDA-Public Use
  Company Number: US-GALDERMA-US14001698

PATIENT
  Age: 64 Year
  Sex: Female

DRUGS (29)
  1. VITAMIN D [Concomitant]
     Active Substance: CHOLECALCIFEROL
     Indication: CALCIUM DEFICIENCY
     Dosage: 2000 IU
     Route: 048
  2. FLUOCINOLONE ACETONIDE 0.01% TOPICAL OIL [Concomitant]
     Indication: RASH PUSTULAR
  3. LUXIQ [Concomitant]
     Active Substance: BETAMETHASONE VALERATE
     Indication: RASH PUSTULAR
  4. WARFARIN [Concomitant]
     Active Substance: WARFARIN
     Dosage: 3.75MG
     Route: 048
     Dates: start: 201104
  5. PRISTIQ EXTENDED RELEASE [Concomitant]
     Active Substance: DESVENLAFAXINE SUCCINATE
     Indication: ANXIETY
  6. CITRACAL [Concomitant]
     Active Substance: CALCIUM CITRATE
     Indication: BLOOD CALCIUM
     Route: 048
  7. CICLOPIROX. [Concomitant]
     Active Substance: CICLOPIROX
     Indication: ROSACEA
  8. FLUOCINOLONE ACETONIDE 0.01% TOPICAL OIL [Concomitant]
     Indication: ROSACEA
     Dosage: 0.01%
     Route: 061
     Dates: start: 20140228
  9. ORACEA [Suspect]
     Active Substance: DOXYCYCLINE
     Indication: ACNE
  10. LUXIQ [Concomitant]
     Active Substance: BETAMETHASONE VALERATE
     Indication: ROSACEA
     Dosage: 0.12%
     Route: 061
     Dates: start: 20140429
  11. LUXIQ [Concomitant]
     Active Substance: BETAMETHASONE VALERATE
     Indication: SEBORRHOEIC DERMATITIS
  12. CYANOCOBALAMIN. [Concomitant]
     Active Substance: CYANOCOBALAMIN
     Route: 030
  13. UNSPECIFIED STOOL SOFTENER [Concomitant]
  14. CICLOPIROX. [Concomitant]
     Active Substance: CICLOPIROX
     Indication: SEBORRHOEIC DERMATITIS
  15. DESONIDE (DESONIDE) LOTION 0.05% [Concomitant]
     Active Substance: DESONIDE
     Indication: SEBORRHOEIC DERMATITIS
  16. NASONEX [Concomitant]
     Active Substance: MOMETASONE FUROATE
     Indication: RHINITIS ALLERGIC
     Route: 045
     Dates: start: 2012
  17. CICLOPIROX. [Concomitant]
     Active Substance: CICLOPIROX
     Indication: THERAPEUTIC SKIN CARE TOPICAL
     Dosage: 1%
     Route: 061
     Dates: start: 20140228
  18. CLINDAMYCIN PHOSPHATE 1% PADS [Concomitant]
     Indication: ROSACEA
     Dosage: 1%
     Route: 061
     Dates: start: 20140228
  19. CLINDAMYCIN PHOSPHATE 1% PADS [Concomitant]
     Indication: SEBORRHOEIC DERMATITIS
  20. VITAMIN D3 [Concomitant]
     Active Substance: CHOLECALCIFEROL
     Dosage: 400 IU
     Route: 048
  21. ORACEA [Suspect]
     Active Substance: DOXYCYCLINE
     Indication: SEBORRHOEIC DERMATITIS
  22. AMLODIPINE [Concomitant]
     Active Substance: AMLODIPINE BESYLATE
     Dosage: 10 MG
     Route: 048
     Dates: start: 20120511
  23. PRISTIQ EXTENDED RELEASE [Concomitant]
     Active Substance: DESVENLAFAXINE SUCCINATE
     Indication: DEPRESSION
     Dosage: 100 MG
     Route: 048
     Dates: start: 201203
  24. DESONIDE (DESONIDE) LOTION 0.05% [Concomitant]
     Active Substance: DESONIDE
     Indication: ROSACEA
     Dosage: 0.05%
     Route: 061
     Dates: start: 20140228
  25. WARFARIN [Concomitant]
     Active Substance: WARFARIN
     Indication: THROMBOSIS
     Dosage: 7.5MG
     Route: 048
     Dates: start: 201104
  26. CLONAZEPAM. [Concomitant]
     Active Substance: CLONAZEPAM
     Indication: INSOMNIA
     Dosage: 0.5 MG
     Route: 048
  27. FLUOCINOLONE ACETONIDE 0.01% TOPICAL OIL [Concomitant]
     Indication: SEBORRHOEIC DERMATITIS
  28. ORACEA [Suspect]
     Active Substance: DOXYCYCLINE
     Indication: ROSACEA
     Dosage: 40 MG
     Route: 048
     Dates: start: 20140430, end: 20140503
  29. LIDOCAINE. [Concomitant]
     Active Substance: LIDOCAINE
     Dosage: 5%
     Route: 062
     Dates: start: 20140507

REACTIONS (3)
  - Blood pressure increased [Recovered/Resolved]
  - Headache [Recovered/Resolved]
  - Product use issue [Recovered/Resolved]

NARRATIVE: CASE EVENT DATE: 20140430
